FAERS Safety Report 8470302-0 (Version None)
Quarter: 2012Q2

REPORT INFORMATION
  Report Type: 
  Country: None (occurrence: None)
  Receive Date: 20120627
  Receipt Date: 20120613
  Transmission Date: 20120825
  Serious: Yes (Death)
  Sender: FDA-Public Use
  Company Number: IT-CELGENEUS-083-21880-12061936

PATIENT

DRUGS (3)
  1. REVLIMID [Suspect]
     Dosage: 25 MILLIGRAM
     Route: 048
     Dates: start: 20100920, end: 20101010
  2. DEXAMETHASONE [Concomitant]
     Indication: LYMPHOMA
     Route: 065
     Dates: start: 20100809, end: 20100919
  3. REVLIMID [Suspect]
     Indication: NON-HODGKIN'S LYMPHOMA
     Dosage: 25 MILLIGRAM
     Route: 048
     Dates: start: 20100809, end: 20100919

REACTIONS (5)
  - DIARRHOEA [None]
  - DEATH [None]
  - THROMBOCYTOPENIA [None]
  - NEUTROPENIA [None]
  - NON-HODGKIN'S LYMPHOMA [None]
